FAERS Safety Report 6681914-9 (Version None)
Quarter: 2010Q1

REPORT INFORMATION
  Report Type: 
  Country: None (occurrence: None)
  Receive Date: 20100313
  Receipt Date: 20100318
  Transmission Date: 20100710
  Serious: Yes (Other)
  Sender: FDA-Public Use
  Company Number: THYM-1000920

PATIENT
  Age: 12 Year
  Sex: Female
  Weight: 50 kg

DRUGS (9)
  1. THYMOGLOBULIN [Suspect]
     Indication: APLASTIC ANAEMIA
     Dosage: 5 MG, ONCE, INTRAVENOUS; 185 MG, ONCE, INTRAENOUS
     Route: 042
     Dates: start: 20090218, end: 20090218
  2. THYMOGLOBULIN [Suspect]
     Indication: APLASTIC ANAEMIA
     Dosage: 5 MG, ONCE, INTRAVENOUS; 185 MG, ONCE, INTRAENOUS
     Route: 042
     Dates: start: 20090218, end: 20090218
  3. METHYLPREDNISOLOEN SODIUM SUCCINATE (METHYLPREDNISOLONE  SODIUM SUCCIN [Concomitant]
  4. CYCLOSPORINE [Concomitant]
  5. CHLORPHENIRAMINE MALEATE [Concomitant]
  6. AMPHOTERICIN B [Concomitant]
  7. SULFAMETOXAZOL MED TRIMETOPRIM (SULFAMETOXAZOLE, TRIMETHOPRIM) [Concomitant]
  8. POLYMYXIN B SULFATE (POLYMYXIN B SULFATE) [Concomitant]
  9. LYMPHOGLOBULINE (ANTITHYMOCYTE IMMUNOGLOBULIN) [Concomitant]

REACTIONS (13)
  - ABDOMINAL PAIN [None]
  - ABDOMINAL PAIN UPPER [None]
  - CHEST PAIN [None]
  - DISSEMINATED INTRAVASCULAR COAGULATION [None]
  - DRUG HYPERSENSITIVITY [None]
  - DRUG INEFFECTIVE [None]
  - HAEMOGLOBIN DECREASED [None]
  - ILEUS [None]
  - LYMPHADENOPATHY [None]
  - OEDEMA PERIPHERAL [None]
  - PYREXIA [None]
  - RASH [None]
  - TACHYCARDIA [None]
